FAERS Safety Report 9861189 (Version 1)
Quarter: 2014Q1

REPORT INFORMATION
  Report Type: Spontaneous
  Country: US (occurrence: US)
  Receive Date: 20140202
  Receipt Date: 20140202
  Transmission Date: 20141002
  Serious: No
  Sender: FDA-Public Use
  Company Number: US-ALLERGAN-1303894US

PATIENT
  Age: 69 Year
  Sex: Female

DRUGS (5)
  1. BOTOX [Suspect]
     Indication: MIGRAINE
     Dosage: 200 UNITS, SINGLE
     Route: 030
     Dates: start: 20130308, end: 20130308
  2. NARATRIPTAN [Suspect]
     Indication: MIGRAINE
     Dosage: 2.5 MG, UNK
     Route: 048
     Dates: start: 20130314
  3. IMITREX                            /01044801/ [Concomitant]
     Indication: MIGRAINE
  4. CRESTOR                            /01588601/ [Concomitant]
     Indication: BLOOD CHOLESTEROL
     Dosage: 5 MG, UNK
     Route: 048
  5. ZETIA [Concomitant]
     Indication: BLOOD CHOLESTEROL
     Dosage: 10 MG, QD
     Route: 048

REACTIONS (3)
  - Hypertension [Unknown]
  - Off label use [Unknown]
  - Headache [Unknown]
